FAERS Safety Report 21194495 (Version 1)
Quarter: 2022Q3

REPORT INFORMATION
  Report Type: Spontaneous
  Country: US (occurrence: None)
  Receive Date: 20220809
  Receipt Date: 20220809
  Transmission Date: 20221026
  Serious: No
  Sender: FDA-Public Use
  Company Number: None

PATIENT
  Age: 49 Year
  Sex: Female
  Weight: 54 kg

DRUGS (6)
  1. ICY HOT ARM NECK LEG AND SMALL AREAS [Suspect]
     Active Substance: MENTHOL
     Indication: Trigeminal neuralgia
     Dates: start: 20220809, end: 20220809
  2. IRBESARTAN [Concomitant]
     Active Substance: IRBESARTAN
  3. GABAPENTIN [Concomitant]
     Active Substance: GABAPENTIN
  4. ZOLOFT [Concomitant]
     Active Substance: SERTRALINE HYDROCHLORIDE
  5. VITAMIN B COMPLEX [Concomitant]
     Active Substance: CYANOCOBALAMIN\DEXPANTHENOL\NIACINAMIDE\PYRIDOXINE HYDROCHLORIDE\RIBOFLAVIN 5^-PHOSPHATE SODIUM\THIA
  6. TYLENOL [Concomitant]
     Active Substance: ACETAMINOPHEN

REACTIONS (4)
  - Chemical burn [None]
  - Application site burn [None]
  - Thermal burn [None]
  - Product use complaint [None]

NARRATIVE: CASE EVENT DATE: 20220809
